FAERS Safety Report 21924307 (Version 1)
Quarter: 2023Q1

REPORT INFORMATION
  Report Type: Spontaneous
  Country: CN (occurrence: CN)
  Receive Date: 20230130
  Receipt Date: 20230130
  Transmission Date: 20230417
  Serious: Yes (Death, Other)
  Sender: FDA-Public Use
  Company Number: CN-SUN PHARMACEUTICAL INDUSTRIES LTD-2023R1-375368

PATIENT
  Age: 51 Year
  Sex: Male

DRUGS (2)
  1. CAPECITABINE [Suspect]
     Active Substance: CAPECITABINE
     Indication: Pleural mesothelioma
     Dosage: UNK ONE CYCLE
     Route: 065
  2. TEMOZOLOMIDE [Suspect]
     Active Substance: TEMOZOLOMIDE
     Indication: Pleural mesothelioma
     Dosage: UNK
     Route: 065

REACTIONS (5)
  - Treatment failure [Fatal]
  - Pneumonia [Fatal]
  - Anaemia [Fatal]
  - Hypoproteinaemia [Fatal]
  - Electrolyte imbalance [Fatal]
